FAERS Safety Report 4844618-0 (Version None)
Quarter: 2005Q4

REPORT INFORMATION
  Report Type: 
  Country: None (occurrence: None)
  Receive Date: 20051125
  Receipt Date: 20051115
  Transmission Date: 20060501
  Serious: Yes (Hospitalization, Other)
  Sender: FDA-Public Use
  Company Number: HQWYE577416NOV05

PATIENT
  Age: 21 Year
  Sex: Male

DRUGS (6)
  1. CORDARONE [Suspect]
     Indication: ARRHYTHMIA
     Dosage: SEE IMAGE, INTRAVENOUS
     Route: 040
     Dates: start: 20050805, end: 20050805
  2. CORDARONE [Suspect]
     Indication: ARRHYTHMIA
     Dosage: SEE IMAGE, INTRAVENOUS
     Route: 040
     Dates: start: 20050805, end: 20050806
  3. ENALAPRIL MALEATE [Concomitant]
  4. METOPROLOL SUCCINATE [Concomitant]
  5. TOREM (TORASEMIDE) [Concomitant]
  6. HEPARIN [Concomitant]

REACTIONS (4)
  - ALANINE AMINOTRANSFERASE INCREASED [None]
  - ASPARTATE AMINOTRANSFERASE INCREASED [None]
  - BLOOD BILIRUBIN INCREASED [None]
  - BLOOD LACTATE DEHYDROGENASE INCREASED [None]
